FAERS Safety Report 8337982-1 (Version None)
Quarter: 2012Q2

REPORT INFORMATION
  Report Type: 
  Country: None (occurrence: None)
  Receive Date: 20120504
  Receipt Date: 20120424
  Transmission Date: 20120825
  Serious: Yes (Other)
  Sender: FDA-Public Use
  Company Number: CA-JNJFOC-20120412086

PATIENT
  Sex: Male
  Weight: 73 kg

DRUGS (4)
  1. PREDNISONE TAB [Concomitant]
     Route: 065
  2. INSULIN [Concomitant]
     Route: 065
  3. REMICADE [Suspect]
     Dosage: 2ND LOADING DOSE
     Route: 042
     Dates: start: 20120424
  4. REMICADE [Suspect]
     Indication: COLITIS ULCERATIVE
     Route: 042
     Dates: start: 20120405

REACTIONS (5)
  - INFUSION RELATED REACTION [None]
  - DEHYDRATION [None]
  - BODY TEMPERATURE INCREASED [None]
  - HYPOTENSION [None]
  - HEART RATE INCREASED [None]
